FAERS Safety Report 21054804 (Version 2)
Quarter: 2022Q3

REPORT INFORMATION
  Report Type: Spontaneous
  Country: US (occurrence: US)
  Receive Date: 20220707
  Receipt Date: 20220728
  Transmission Date: 20221027
  Serious: Yes (Hospitalization)
  Sender: FDA-Public Use
  Company Number: US-TEVA-2022-US-2052487

PATIENT
  Age: 40 Year
  Sex: Male

DRUGS (18)
  1. PREDNISONE [Suspect]
     Active Substance: PREDNISONE
     Indication: Immunosuppressant drug therapy
     Dosage: 10 MILLIGRAM DAILY;
     Route: 065
  2. VORICONAZOLE [Suspect]
     Active Substance: VORICONAZOLE
     Indication: Disseminated aspergillosis
     Dosage: 800 MILLIGRAM DAILY; FOR TWO DOSES- 6 MG/KG
     Route: 065
  3. VORICONAZOLE [Suspect]
     Active Substance: VORICONAZOLE
     Dosage: 600 MILLIGRAM DAILY; 4 MG/KG
     Route: 065
  4. VORICONAZOLE [Suspect]
     Active Substance: VORICONAZOLE
     Dosage: 1100 MILLIGRAM DAILY;
     Route: 065
  5. VORICONAZOLE [Suspect]
     Active Substance: VORICONAZOLE
     Dosage: VORICONAZOLE RESUMED AFTER ONCE DISCONTINUATION
     Route: 065
  6. RUXOLITINIB [Suspect]
     Active Substance: RUXOLITINIB
     Indication: Immunosuppressant drug therapy
     Dosage: 10 MILLIGRAM DAILY;
     Route: 065
  7. TACROLIMUS [Suspect]
     Active Substance: TACROLIMUS
     Indication: Immunosuppressant drug therapy
     Dosage: 2 MILLIGRAM DAILY;
     Route: 065
  8. ISAVUCONAZOLE [Suspect]
     Active Substance: ISAVUCONAZOLE
     Indication: Disseminated aspergillosis
     Dosage: 372 MILLIGRAM DAILY;
     Route: 065
  9. ISAVUCONAZOLE [Suspect]
     Active Substance: ISAVUCONAZOLE
     Dosage: 372 MILLIGRAM DAILY; AFTER PERSISTENTLY POSITIVE GALACTOMANNAN
     Route: 065
  10. ISAVUCONAZOLE [Suspect]
     Active Substance: ISAVUCONAZOLE
     Dosage: 372 MILLIGRAM DAILY; AFTER ASPERGILLUS GALACTOMANNAN LEVEL REACHED MORE THAN 10
     Route: 065
  11. MICAFUNGIN [Suspect]
     Active Substance: MICAFUNGIN
     Indication: Disseminated aspergillosis
     Dosage: 100 MILLIGRAM DAILY;
     Route: 042
  12. MICAFUNGIN [Suspect]
     Active Substance: MICAFUNGIN
     Dosage: 150 MILLIGRAM DAILY;
     Route: 042
  13. AMPHOTERICIN B [Suspect]
     Active Substance: AMPHOTERICIN B
     Indication: Disseminated aspergillosis
     Dosage: 5 MG/KG DAILY;
     Route: 042
  14. AMPHOTERICIN B [Suspect]
     Active Substance: AMPHOTERICIN B
     Dosage: THREE TIMES WEEKLY (AFTER DISCHARGE)
     Route: 042
  15. TERBINAFINE [Suspect]
     Active Substance: TERBINAFINE
     Indication: Disseminated aspergillosis
     Dosage: 1000 MILLIGRAM DAILY;
     Route: 065
  16. FOSCARNET [Concomitant]
     Active Substance: FOSCARNET
     Indication: Cytomegalovirus infection reactivation
     Route: 065
  17. AMPICILLIN [Concomitant]
     Active Substance: AMPICILLIN
     Indication: Antibiotic therapy
     Route: 065
  18. CEFTRIAXONE [Concomitant]
     Active Substance: CEFTRIAXONE
     Indication: Antibiotic therapy
     Route: 065

REACTIONS (2)
  - Disseminated aspergillosis [Recovering/Resolving]
  - Drug ineffective [Unknown]
